FAERS Safety Report 10044554 (Version 1)
Quarter: 2014Q1

REPORT INFORMATION
  Report Type: Spontaneous
  Country: FR (occurrence: FR)
  Receive Date: 20140328
  Receipt Date: 20140328
  Transmission Date: 20141002
  Serious: Yes (Death, Life-Threatening)
  Sender: FDA-Public Use
  Company Number: FR-PFIZER INC-2014087459

PATIENT
  Age: 76 Year
  Sex: Male

DRUGS (11)
  1. CORDARONE [Suspect]
     Indication: ATRIAL FIBRILLATION
     Dosage: UNK
     Route: 048
     Dates: start: 201312, end: 20140109
  2. BISOCE [Concomitant]
     Dosage: UNK
  3. CIFLOX [Concomitant]
     Dosage: UNK
  4. KARDEGIC [Concomitant]
     Dosage: UNK
  5. TAHOR [Concomitant]
     Dosage: UNK
  6. LASILIX [Concomitant]
     Dosage: UNK
  7. ALDACTONE [Concomitant]
     Dosage: UNK
  8. DOLIPRANE [Concomitant]
     Dosage: UNK
  9. ACUPAN [Concomitant]
     Dosage: UNK
  10. ZOLOFT [Concomitant]
     Dosage: UNK
  11. SERESTA [Concomitant]
     Dosage: UNK

REACTIONS (4)
  - Death [Fatal]
  - Hyperthyroidism [Recovering/Resolving]
  - Cardiac failure [Recovering/Resolving]
  - Coronary artery stenosis [Unknown]
